FAERS Safety Report 12731075 (Version 1)
Quarter: 2016Q3

REPORT INFORMATION
  Report Type: Spontaneous
  Country: US (occurrence: US)
  Receive Date: 20160907
  Receipt Date: 20160907
  Transmission Date: 20161109
  Serious: Yes (Other)
  Sender: FDA-Public Use
  Company Number: None

PATIENT
  Age: 60 Year
  Sex: Female

DRUGS (8)
  1. HYDROMORPHONE [Concomitant]
     Active Substance: HYDROMORPHONE
  2. ACYCLOVIR. [Concomitant]
     Active Substance: ACYCLOVIR
  3. ONDANSETRON [Concomitant]
     Active Substance: ONDANSETRON
  4. PHENAZOPYRIDINE. [Concomitant]
     Active Substance: PHENAZOPYRIDINE
  5. DEXAMETHASONE. [Concomitant]
     Active Substance: DEXAMETHASONE
  6. REVLIMID [Suspect]
     Active Substance: LENALIDOMIDE
     Indication: PLASMA CELL MYELOMA
     Route: 048
     Dates: start: 200901, end: 201308
  7. ACETAMINOPHEN. [Concomitant]
     Active Substance: ACETAMINOPHEN
  8. GABAPENTIN. [Concomitant]
     Active Substance: GABAPENTIN

REACTIONS (1)
  - Deep vein thrombosis [None]

NARRATIVE: CASE EVENT DATE: 20130612
